FAERS Safety Report 17334760 (Version 2)
Quarter: 2020Q4

REPORT INFORMATION
  Report Type: Report from Study
  Country: FR (occurrence: FR)
  Receive Date: 20200128
  Receipt Date: 20201026
  Transmission Date: 20210113
  Serious: Yes (Hospitalization)
  Sender: FDA-Public Use
  Company Number: FR-JNJFOC-20200133246

PATIENT
  Sex: Male

DRUGS (20)
  1. PRIMPERAN [Concomitant]
     Active Substance: METOCLOPRAMIDE HYDROCHLORIDE
     Indication: PROPHYLAXIS OF NAUSEA AND VOMITING
     Dates: start: 20191121
  2. DARATUMUMAB [Suspect]
     Active Substance: DARATUMUMAB
     Dosage: D1 20-DEC-2019; D8 27-DEC-2019; D15 03-JAN-2020; MOST RECENT DOSE D22 ON 10-JAN-2020
     Route: 058
     Dates: start: 20191220
  3. DEXAMETHASONE. [Suspect]
     Active Substance: DEXAMETHASONE
     Indication: PLASMA CELL MYELOMA
     Dosage: MOST RECENT DOSE 03-JAN-2020
     Route: 048
     Dates: start: 20191220
  4. LENALIDOMIDE [Suspect]
     Active Substance: LENALIDOMIDE
     Indication: PLASMA CELL MYELOMA
     Dosage: MOST RECENT DOSE 08-JAN-2020
     Route: 048
     Dates: start: 20191220
  5. TAHOR [Concomitant]
     Active Substance: ATORVASTATIN CALCIUM
  6. BACTRIM [Concomitant]
     Active Substance: SULFAMETHOXAZOLE\TRIMETHOPRIM
     Indication: INFECTION PROPHYLAXIS
     Dates: start: 20191113
  7. PANTOPRAZOLE [Concomitant]
     Active Substance: PANTOPRAZOLE
     Indication: PROPHYLAXIS AGAINST GASTROINTESTINAL ULCER
     Dates: end: 20200117
  8. VENTOLINE                          /00139501/ [Concomitant]
     Active Substance: ALBUTEROL
     Indication: PNEUMONITIS
     Dates: start: 20191217
  9. LEDERFOLINE [Concomitant]
     Active Substance: LEUCOVORIN CALCIUM
     Indication: INFECTION PROPHYLAXIS
     Dates: start: 20191112
  10. BICARBONATE DE SODIUM PCH [Concomitant]
     Active Substance: SODIUM BICARBONATE
     Indication: INFECTION PROPHYLAXIS
  11. PERINDOPRIL [Concomitant]
     Active Substance: PERINDOPRIL
     Indication: HYPERTENSION
     Dates: start: 20151008, end: 20200118
  12. VALACICLOVIR [Concomitant]
     Active Substance: VALACYCLOVIR HYDROCHLORIDE
     Indication: INFECTION PROPHYLAXIS
     Dates: start: 20191112
  13. EUPHYTOSE                          /05965601/ [Concomitant]
     Active Substance: HERBALS
     Indication: ANXIETY
     Dates: start: 20191011
  14. DARATUMUMAB [Suspect]
     Active Substance: DARATUMUMAB
     Indication: PLASMA CELL MYELOMA
     Route: 058
     Dates: start: 20191120
  15. CELECTOL [Concomitant]
     Active Substance: CELIPROLOL HYDROCHLORIDE
     Indication: HYPERTENSION
     Dates: end: 20200118
  16. MECIR [Concomitant]
     Active Substance: TAMSULOSIN HYDROCHLORIDE
     Dates: start: 20191115
  17. COUMADINE [Concomitant]
     Active Substance: WARFARIN SODIUM
     Dates: end: 20200118
  18. FINASTERIDE. [Concomitant]
     Active Substance: FINASTERIDE
     Dates: start: 20191115
  19. MELAXOSE [Concomitant]
     Active Substance: LACTULOSE\PARAFFIN
     Indication: CONSTIPATION
     Dates: start: 20191011
  20. ORACILLINE                         /00001801/ [Concomitant]
     Active Substance: PENICILLIN V
     Indication: INFECTION PROPHYLAXIS
     Dates: start: 20191112

REACTIONS (1)
  - Weight decreased [Recovered/Resolved]

NARRATIVE: CASE EVENT DATE: 20200117
